FAERS Safety Report 4621514-5 (Version None)
Quarter: 2005Q1

REPORT INFORMATION
  Report Type: 
  Country: None (occurrence: None)
  Receive Date: 20050328
  Receipt Date: 20031125
  Transmission Date: 20050727
  Serious: No
  Sender: FDA-Public Use
  Company Number: 10097

PATIENT
  Age: 69 Year
  Sex: Female

DRUGS (2)
  1. METHOTREXATE [Suspect]
     Dosage: 15 MG WEEKLY, 20 MG WEEKLY;
     Dates: start: 20011101, end: 20020201
  2. METHOTREXATE [Suspect]
     Dosage: 15 MG WEEKLY, 20 MG WEEKLY;
     Dates: start: 20020225

REACTIONS (1)
  - CARPAL TUNNEL DECOMPRESSION [None]
